FAERS Safety Report 17298836 (Version 2)
Quarter: 2020Q1

REPORT INFORMATION
  Report Type: Spontaneous
  Country: US (occurrence: US)
  Receive Date: 20200122
  Receipt Date: 20200313
  Transmission Date: 20200409
  Serious: No
  Sender: FDA-Public Use
  Company Number: US-GILEAD-2020-0447285

PATIENT
  Sex: Male

DRUGS (3)
  1. MOTRIN IB SINUS [Concomitant]
  2. SOFOSBUVIR;VELPATASVIR [Suspect]
     Active Substance: SOFOSBUVIR\VELPATASVIR
     Indication: CHRONIC HEPATITIS C
     Dosage: SOFOSBUVIR/VELPATASVIR 400MG-100MG  |  TAKE 1 TABLET BY MOUTH DAILY
     Route: 048
     Dates: start: 20200101
  3. ANTIBIOTIC EAR [Concomitant]

REACTIONS (3)
  - Headache [Not Recovered/Not Resolved]
  - Nasopharyngitis [Not Recovered/Not Resolved]
  - Influenza [Not Recovered/Not Resolved]
